FAERS Safety Report 4541577-5 (Version None)
Quarter: 2004Q4

REPORT INFORMATION
  Report Type: 
  Country: None (occurrence: None)
  Receive Date: 20041227
  Receipt Date: 20041220
  Transmission Date: 20050328
  Serious: Yes (Other)
  Sender: FDA-Public Use
  Company Number: GBR-2004-0001420

PATIENT
  Age: 73 Year
  Sex: Female
  Weight: 85 kg

DRUGS (4)
  1. DIHYDROCODEINE BITARTRATE INJ [Suspect]
     Dosage: SEE IMAGE
     Route: 048
     Dates: end: 20041013
  2. LYRICA [Suspect]
     Indication: PAIN
     Dosage: SEE IMAGE
     Route: 048
  3. BECLOMETHASONE DIPROPIONATE [Concomitant]
  4. SALBUTAMOL (SALBUTAMOL) [Concomitant]

REACTIONS (4)
  - COMA [None]
  - DEPRESSED LEVEL OF CONSCIOUSNESS [None]
  - DRUG INTERACTION [None]
  - SOMNOLENCE [None]
